FAERS Safety Report 9226669 (Version 1)
Quarter: 2013Q2

REPORT INFORMATION
  Report Type: Spontaneous
  Country: US (occurrence: None)
  Receive Date: 20130410
  Receipt Date: 20130410
  Transmission Date: 20140414
  Serious: Yes (Hospitalization)
  Sender: FDA-Public Use
  Company Number: None

PATIENT
  Age: 34 Year
  Sex: Male
  Weight: 130.5 kg

DRUGS (10)
  1. DAPTOMYCIN [Suspect]
     Indication: HIP SURGERY
     Dosage: RECENT
     Route: 042
  2. COUMADIN [Suspect]
     Indication: ATRIAL FIBRILLATION
     Dosage: CHRONIC  MTWTHSAT
     Route: 048
  3. PAXIL [Concomitant]
  4. LOPRESSOR [Concomitant]
  5. OXYCONTIN [Concomitant]
  6. NORCO [Concomitant]
  7. SENOKOT [Concomitant]
  8. COLACE [Concomitant]
  9. CIPRO [Concomitant]
  10. LYRICA [Concomitant]

REACTIONS (4)
  - Eosinophilic pneumonia acute [None]
  - Sepsis [None]
  - Renal disorder [None]
  - International normalised ratio increased [None]
